FAERS Safety Report 8836558 (Version 3)
Quarter: 2013Q2

REPORT INFORMATION
  Report Type: Spontaneous
  Country: US (occurrence: None)
  Receive Date: 20121009
  Receipt Date: 20130611
  Transmission Date: 20140414
  Serious: Yes (Hospitalization, Other)
  Sender: FDA-Public Use
  Company Number: ACO_32251_2012

PATIENT
  Age: 55 Year
  Sex: Female

DRUGS (2)
  1. AMPYRA [Suspect]
     Indication: MULTIPLE SCLEROSIS
     Dates: start: 201101
  2. AVONEX [Concomitant]

REACTIONS (3)
  - Cellulitis [None]
  - Multiple sclerosis relapse [None]
  - Diabetes mellitus [None]
